FAERS Safety Report 4349287-4 (Version None)
Quarter: 2004Q1

REPORT INFORMATION
  Report Type: 
  Country: None (occurrence: None)
  Receive Date: 20040329
  Receipt Date: 20031210
  Transmission Date: 20041129
  Serious: No
  Sender: FDA-Public Use
  Company Number: USA031049729

PATIENT
  Age: 13 Year
  Sex: Male
  Weight: 42 kg

DRUGS (7)
  1. STRATTERA [Suspect]
     Dosage: 60 MG/IN THE MORNING
     Dates: start: 20031010
  2. CORTICOSTEROIDS NOS [Concomitant]
  3. ALBUTEROL [Concomitant]
  4. ALLEGRA [Concomitant]
  5. GUAIFENESIN [Concomitant]
  6. ACCOLATE [Concomitant]
  7. IMIPRAMINE [Concomitant]

REACTIONS (7)
  - ASTHMA [None]
  - DIZZINESS [None]
  - DYSPEPSIA [None]
  - INSOMNIA [None]
  - NAUSEA [None]
  - PSYCHOMOTOR HYPERACTIVITY [None]
  - SOMNOLENCE [None]
